FAERS Safety Report 9009382 (Version 1)
Quarter: 2013Q1

REPORT INFORMATION
  Report Type: Spontaneous
  Country: BR (occurrence: BR)
  Receive Date: 20130111
  Receipt Date: 20130111
  Transmission Date: 20140127
  Serious: Yes (Other)
  Sender: FDA-Public Use
  Company Number: PHHY2013BR002322

PATIENT
  Sex: Female
  Weight: 85 kg

DRUGS (3)
  1. DIOVAN [Suspect]
     Indication: HYPERTENSION
     Dosage: 2 DF,2 TABLETS DAILY
     Route: 048
  2. PROPATYLNITRATE [Concomitant]
     Indication: ANGINA PECTORIS
     Dosage: 1 DF,1 TABLET DAILY
     Route: 048
  3. DIGOXIN [Concomitant]
     Indication: CARDIAC FAILURE
     Dosage: 1 DF, 1 TABLET DAILY
     Route: 048

REACTIONS (6)
  - Accident [Recovered/Resolved]
  - Foot fracture [Recovered/Resolved]
  - Abasia [Recovered/Resolved]
  - Pain in extremity [Not Recovered/Not Resolved]
  - Angina unstable [Recovered/Resolved]
  - Blood pressure increased [Recovered/Resolved]
